FAERS Safety Report 19390387 (Version 1)
Quarter: 2021Q2

REPORT INFORMATION
  Report Type: Report from Study
  Country: US (occurrence: US)
  Receive Date: 20210608
  Receipt Date: 20210608
  Transmission Date: 20210717
  Serious: Yes (Hospitalization, Other)
  Sender: FDA-Public Use
  Company Number: US-BRISTOL-MYERS SQUIBB COMPANY-BMS-2021-054123

PATIENT
  Age: 5 Year
  Sex: Female
  Weight: 17.7 kg

DRUGS (4)
  1. DEXAMETHASONE. [Suspect]
     Active Substance: DEXAMETHASONE
     Indication: B PRECURSOR TYPE ACUTE LEUKAEMIA
     Dosage: 7.4 MILLIGRAM
     Route: 065
     Dates: start: 20210420, end: 20210427
  2. NIVOLUMAB [Suspect]
     Active Substance: NIVOLUMAB
     Indication: B PRECURSOR TYPE ACUTE LEUKAEMIA
     Dosage: 106 MILLIGRAM
     Route: 065
     Dates: start: 20210430, end: 20210514
  3. METHOTREXATE SODIUM. [Suspect]
     Active Substance: METHOTREXATE SODIUM
     Indication: B PRECURSOR TYPE ACUTE LEUKAEMIA
     Dosage: 24 MILLIGRAM
     Route: 065
     Dates: start: 20210420, end: 20210504
  4. BLINATUMOMAB [Suspect]
     Active Substance: BLINATUMOMAB
     Indication: B PRECURSOR TYPE ACUTE LEUKAEMIA
     Dosage: 262.15 MICROGRAM
     Route: 065
     Dates: start: 20210420, end: 20210514

REACTIONS (2)
  - Sepsis [Not Recovered/Not Resolved]
  - Febrile neutropenia [Not Recovered/Not Resolved]

NARRATIVE: CASE EVENT DATE: 20210502
